FAERS Safety Report 12276632 (Version 1)
Quarter: 2016Q2

REPORT INFORMATION
  Report Type: Spontaneous
  Country: US (occurrence: None)
  Receive Date: 20160415
  Receipt Date: 20160415
  Transmission Date: 20160815
  Serious: Yes (Other)
  Sender: FDA-Public Use
  Company Number: None

PATIENT
  Age: 56 Year
  Sex: Female
  Weight: 88.45 kg

DRUGS (11)
  1. WELLBUTRIN XL [Concomitant]
     Active Substance: BUPROPION HYDROCHLORIDE
  2. VITAMIN D3 [Concomitant]
     Active Substance: CHOLECALCIFEROL
  3. METFORMIN [Concomitant]
     Active Substance: METFORMIN HYDROCHLORIDE
  4. TURMERIC [Concomitant]
     Active Substance: TURMERIC
  5. ACETAMINOPHEN. [Concomitant]
     Active Substance: ACETAMINOPHEN
  6. B12 COMPLEX [Concomitant]
  7. METOPROLOL TARTRATE 50 MG, 50 MG [Suspect]
     Active Substance: METOPROLOL TARTRATE
     Indication: MITRAL VALVE PROLAPSE
     Route: 048
     Dates: start: 20160403, end: 20160414
  8. ASPIRIN. [Concomitant]
     Active Substance: ASPIRIN
  9. TRAMADOL. [Concomitant]
     Active Substance: TRAMADOL
  10. CENTRUM SILVER [Concomitant]
     Active Substance: MINERALS\VITAMINS
  11. SYNTHROID [Concomitant]
     Active Substance: LEVOTHYROXINE SODIUM

REACTIONS (6)
  - Product substitution issue [None]
  - Malaise [None]
  - Dizziness [None]
  - Nausea [None]
  - Drug administration error [None]
  - Arrhythmia [None]

NARRATIVE: CASE EVENT DATE: 20160414
